FAERS Safety Report 6130976-6 (Version None)
Quarter: 2009Q1

REPORT INFORMATION
  Report Type: 
  Country: None (occurrence: None)
  Receive Date: 20090325
  Receipt Date: 20090316
  Transmission Date: 20090719
  Serious: Yes (Hospitalization)
  Sender: FDA-Public Use
  Company Number: JP-BAXTER-2009BH004230

PATIENT

DRUGS (2)
  1. ENDOXAN BAXTER [Suspect]
     Indication: CONNECTIVE TISSUE DISORDER
     Route: 042
  2. ENDOXAN BAXTER [Suspect]
     Indication: OFF LABEL USE
     Route: 042

REACTIONS (1)
  - RENAL FAILURE [None]
